FAERS Safety Report 13437212 (Version 2)
Quarter: 2017Q2

REPORT INFORMATION
  Report Type: Spontaneous
  Country: DK (occurrence: DK)
  Receive Date: 20170413
  Receipt Date: 20170419
  Transmission Date: 20170830
  Serious: Yes (Hospitalization, Other)
  Sender: FDA-Public Use
  Company Number: DK-UCBSA-2017013816

PATIENT
  Sex: Male

DRUGS (5)
  1. CIMZIA [Suspect]
     Active Substance: CERTOLIZUMAB PEGOL
     Indication: ANKYLOSING SPONDYLITIS
  2. ATORVASTATIN [Concomitant]
     Active Substance: ATORVASTATIN
     Indication: PRODUCT USED FOR UNKNOWN INDICATION
     Route: 048
  3. CIMZIA [Suspect]
     Active Substance: CERTOLIZUMAB PEGOL
     Indication: DEMENTIA ALZHEIMER^S TYPE
     Dosage: 200 MG, EV 2 WEEKS(QOW)
     Dates: start: 20140703, end: 201501
  4. HUMIRA [Suspect]
     Active Substance: ADALIMUMAB
     Indication: ANKYLOSING SPONDYLITIS
     Dosage: 40 MG, EV 2 WEEKS(QOW)
     Dates: start: 20111130, end: 20140703
  5. HUMIRA [Suspect]
     Active Substance: ADALIMUMAB
     Dosage: 40 MG, EV 2 WEEKS(QOW)/ 0.4 ML
     Dates: start: 201501, end: 201602

REACTIONS (20)
  - Thrombosis [Unknown]
  - Depression [Unknown]
  - Angina unstable [Unknown]
  - Abdominal hernia [Unknown]
  - Onychoclasis [Unknown]
  - Arthralgia [Unknown]
  - Pain [Unknown]
  - Mood swings [Unknown]
  - Inguinal hernia [Unknown]
  - Drug ineffective [Unknown]
  - Tinnitus [Unknown]
  - Chondropathy [Unknown]
  - Aortic arteriosclerosis [Unknown]
  - Myalgia [Unknown]
  - Hypersensitivity [Unknown]
  - Rash [Unknown]
  - Tooth disorder [Unknown]
  - Joint swelling [Unknown]
  - Insomnia [Unknown]
  - Tremor [Unknown]
